FAERS Safety Report 7422767-0 (Version None)
Quarter: 2011Q2

REPORT INFORMATION
  Report Type: 
  Country: None (occurrence: None)
  Receive Date: 20110419
  Receipt Date: 20110405
  Transmission Date: 20111010
  Serious: Yes (Other)
  Sender: FDA-Public Use
  Company Number: GB-RANBAXY-2011R1-43593

PATIENT
  Age: 64 Year
  Sex: Female
  Weight: 124 kg

DRUGS (10)
  1. CLARITHROMYCIN [Suspect]
     Indication: LOWER RESPIRATORY TRACT INFECTION
     Dosage: 1 G, UNK
     Route: 048
     Dates: start: 20110318
  2. LANSOPRAZOLE [Concomitant]
     Indication: PEPTIC ULCER
     Dosage: 30 MG, UNK
     Route: 048
     Dates: start: 20100211
  3. METFORMIN [Concomitant]
     Indication: DIABETES MELLITUS
     Dosage: 2 G, UNK
     Route: 048
     Dates: start: 20080101
  4. ESCITALOPRAM [Concomitant]
     Indication: DEPRESSION
     Dosage: 20 MG, UNK
     Route: 048
     Dates: start: 20080911
  5. PIOGLITAZONE [Concomitant]
     Indication: DIABETES MELLITUS
     Dosage: 45 MG, UNK
     Route: 048
     Dates: start: 20100506
  6. BENDROFLUAZIDE [Concomitant]
     Indication: HYPERTENSION
     Dosage: 2.5 MG, UNK
     Route: 048
     Dates: start: 20080911
  7. RAMIPRIL [Concomitant]
     Indication: HYPERTENSION
     Dosage: 5 MG, UNK
     Route: 048
     Dates: start: 20091010
  8. GLICLAZIDE [Suspect]
     Indication: DIABETES MELLITUS
     Dosage: 160 MG, UNK
     Route: 048
     Dates: start: 20110305
  9. COLOFAC [Concomitant]
     Indication: IRRITABLE BOWEL SYNDROME
     Dosage: 400 MG, UNK
     Route: 048
     Dates: start: 20110307
  10. SIMVASTATIN [Concomitant]
     Indication: HYPERCHOLESTEROLAEMIA
     Dosage: 40 MG, QD
     Route: 065
     Dates: start: 20080911

REACTIONS (2)
  - DRUG INTERACTION [None]
  - HYPOGLYCAEMIA [None]
